FAERS Safety Report 11589967 (Version 2)
Quarter: 2015Q4

REPORT INFORMATION
  Report Type: Spontaneous
  Country: JP (occurrence: JP)
  Receive Date: 20151002
  Receipt Date: 20151125
  Transmission Date: 20160304
  Serious: Yes (Death)
  Sender: FDA-Public Use
  Company Number: JP-DEP_12775_2015

PATIENT
  Age: 73 Year
  Sex: Male

DRUGS (6)
  1. LENDORMIN (BROTIZOLAM) [Concomitant]
     Dosage: DF
  2. FENTOS (FENTANYL CITRATE) [Concomitant]
     Dosage: DF
  3. BETAMETHASONE (BETAMETHASONE) [Concomitant]
     Dosage: DF
  4. NEXIUM [Concomitant]
     Active Substance: ESOMEPRAZOLE MAGNESIUM
     Dosage: DF
  5. TAPENTA (TAPENTADOL) [Suspect]
     Active Substance: TAPENTADOL HYDROCHLORIDE
     Indication: CANCER PAIN
     Route: 048
     Dates: end: 20150919
  6. CALONAL (PARACETAMOL) [Concomitant]
     Dosage: DF

REACTIONS (2)
  - Lung neoplasm malignant [Fatal]
  - Dyspnoea [Fatal]

NARRATIVE: CASE EVENT DATE: 20150919
